FAERS Safety Report 24140888 (Version 2)
Quarter: 2024Q3

REPORT INFORMATION
  Report Type: Spontaneous
  Country: TR (occurrence: TR)
  Receive Date: 20240726
  Receipt Date: 20240817
  Transmission Date: 20241016
  Serious: Yes (Other)
  Sender: ACCORD
  Company Number: TR-MLMSERVICE-20240710-PI125017-00255-3

PATIENT
  Age: 63 Year
  Sex: Male
  Weight: 67 kg

DRUGS (8)
  1. CARBOPLATIN [Suspect]
     Active Substance: CARBOPLATIN
     Indication: Lung neoplasm malignant
     Dosage: CYCLICAL, WEEKLY
     Route: 042
     Dates: start: 20221027, end: 20230213
  2. GEMCITABINE [Suspect]
     Active Substance: GEMCITABINE
     Indication: Lung neoplasm malignant
     Dosage: CYCLICAL, WEEKLY
     Route: 042
     Dates: start: 20221027, end: 20230213
  3. PACLITAXEL [Suspect]
     Active Substance: PACLITAXEL
     Indication: Lung neoplasm malignant
     Dosage: CYCLICAL, WEEKLY
     Route: 042
     Dates: start: 20221027, end: 20230213
  4. PEMBROLIZUMAB [Suspect]
     Active Substance: PEMBROLIZUMAB
     Indication: Lung neoplasm malignant
     Dosage: CYCLICAL, 3 WEEKLY
     Route: 042
     Dates: start: 20221117, end: 20230511
  5. PACLITAXEL [Suspect]
     Active Substance: PACLITAXEL
     Indication: Metastases to bone
     Dosage: CYCLICAL, WEEKLY
     Route: 042
     Dates: start: 20221027, end: 20230213
  6. PEMBROLIZUMAB [Suspect]
     Active Substance: PEMBROLIZUMAB
     Indication: Metastases to bone
     Dosage: CYCLICAL, 3 WEEKLY
     Route: 042
     Dates: start: 20221117, end: 20230511
  7. CARBOPLATIN [Suspect]
     Active Substance: CARBOPLATIN
     Indication: Metastases to bone
     Dosage: CYCLICAL, WEEKLY
     Route: 042
     Dates: start: 20221027, end: 20230213
  8. GEMCITABINE [Suspect]
     Active Substance: GEMCITABINE
     Indication: Metastases to bone
     Dosage: CYCLICAL, WEEKLY
     Route: 042
     Dates: start: 20221027, end: 20230213

REACTIONS (1)
  - Muscle necrosis [Recovered/Resolved]
